FAERS Safety Report 8559149 (Version 4)
Quarter: 2012Q4

REPORT INFORMATION
  Report Type: 
  Country: DK (occurrence: DK)
  Receive Date: 20120511
  Receipt Date: 20120904
  Transmission Date: 20130627
  Serious: Yes (Hospitalization)
  Sender: FDA-Public Use
  Company Number: DK-JNJFOC-20120507706

PATIENT
  Age: 30 Year
  Sex: Female

DRUGS (4)
  1. REMICADE [Suspect]
     Indication: ANKYLOSING SPONDYLITIS
     Route: 042
     Dates: start: 20120424
  2. REMICADE [Suspect]
     Indication: ANKYLOSING SPONDYLITIS
     Route: 042
     Dates: start: 2007
  3. REMICADE [Suspect]
     Indication: ANKYLOSING SPONDYLITIS
     Route: 042
     Dates: start: 2006
  4. TOPIMAX [Concomitant]
     Dosage: 200mg+100mg+200mg
     Route: 065

REACTIONS (8)
  - Suspected transmission of an infectious agent via product [Unknown]
  - Product contamination microbial [Unknown]
  - Viral infection [Unknown]
  - Asthenia [Recovering/Resolving]
  - Pain in jaw [Recovering/Resolving]
  - Trismus [Recovering/Resolving]
  - Guillain-Barre syndrome [Recovering/Resolving]
  - Pyrexia [Recovering/Resolving]
